FAERS Safety Report 6665998-X (Version None)
Quarter: 2010Q2

REPORT INFORMATION
  Report Type: 
  Country: None (occurrence: None)
  Receive Date: 20100402
  Receipt Date: 20100329
  Transmission Date: 20101027
  Serious: Yes (Other)
  Sender: FDA-Public Use
  Company Number: FR-BRISTOL-MYERS SQUIBB COMPANY-15041114

PATIENT
  Age: 4 Decade
  Sex: Male

DRUGS (2)
  1. REYATAZ [Suspect]
  2. TRUVADA [Suspect]

REACTIONS (1)
  - HEPATITIS ACUTE [None]
